FAERS Safety Report 10236052 (Version 1)
Quarter: 2014Q2

REPORT INFORMATION
  Report Type: Spontaneous
  Country: US (occurrence: US)
  Receive Date: 20140613
  Receipt Date: 20140613
  Transmission Date: 20141212
  Serious: Yes (Other)
  Sender: FDA-Public Use
  Company Number: US-SHIRE-US201402796

PATIENT
  Sex: Female

DRUGS (2)
  1. CINRYZE [Suspect]
     Indication: HEREDITARY ANGIOEDEMA
     Dosage: 1000 UNITS, UNKNOWN (MAYBE TWICE WEEKLY)
     Route: 042
  2. CINRYZE [Suspect]
     Indication: PROPHYLAXIS

REACTIONS (2)
  - Pharyngeal oedema [Unknown]
  - Hereditary angioedema [Unknown]
